FAERS Safety Report 25407294 (Version 1)
Quarter: 2025Q2

REPORT INFORMATION
  Report Type: Spontaneous
  Country: US (occurrence: None)
  Receive Date: 20250605
  Receipt Date: 20250605
  Transmission Date: 20250716
  Serious: Yes (Hospitalization, Other)
  Sender: FDA-CTU
  Company Number: None

PATIENT
  Age: 33 Year
  Sex: Female
  Weight: 92.25 kg

DRUGS (9)
  1. ZURZUVAE [Suspect]
     Active Substance: ZURANOLONE
     Indication: Perinatal depression
     Dosage: FREQUENCY : AT BEDTIME;?
     Route: 048
     Dates: start: 20250516, end: 20250517
  2. LEXAPRO [Suspect]
     Active Substance: ESCITALOPRAM OXALATE
  3. VENLAFAXINE [Concomitant]
     Active Substance: VENLAFAXINE HYDROCHLORIDE
  4. QUETIAPINE [Concomitant]
     Active Substance: QUETIAPINE
  5. LORAZEPAM [Concomitant]
     Active Substance: LORAZEPAM
  6. METFORMIN [Concomitant]
     Active Substance: METFORMIN HYDROCHLORIDE
  7. VITAMINS [Concomitant]
     Active Substance: VITAMINS
  8. IRON [Concomitant]
     Active Substance: IRON
  9. PROBIOTICS NOS [Concomitant]
     Active Substance: PROBIOTICS NOS

REACTIONS (7)
  - Anxiety [None]
  - Self-injurious ideation [None]
  - Depression [None]
  - Exposure during pregnancy [None]
  - Negative thoughts [None]
  - Self-injurious ideation [None]
  - Aggression [None]

NARRATIVE: CASE EVENT DATE: 20250517
